FAERS Safety Report 6870099-1 (Version None)
Quarter: 2010Q3

REPORT INFORMATION
  Report Type: 
  Country: None (occurrence: None)
  Receive Date: 20100722
  Receipt Date: 20090320
  Transmission Date: 20110219
  Serious: Yes (Other)
  Sender: FDA-Public Use
  Company Number: US-PFIZER INC-2008075168

PATIENT
  Sex: Male

DRUGS (4)
  1. CHANTIX [Suspect]
  2. LITHIUM [Concomitant]
  3. ABILIFY [Concomitant]
  4. AVELOX [Concomitant]

REACTIONS (3)
  - REGURGITATION [None]
  - SYNCOPE [None]
  - UNEVALUABLE EVENT [None]
